FAERS Safety Report 5742570-7 (Version None)
Quarter: 2008Q2

REPORT INFORMATION
  Report Type: 
  Country: None (occurrence: None)
  Receive Date: 20080515
  Receipt Date: 20080509
  Transmission Date: 20081010
  Serious: Yes (Death)
  Sender: FDA-Public Use
  Company Number: 2007-00738

PATIENT
  Age: 61 Year
  Sex: Female
  Weight: 67 kg

DRUGS (11)
  1. VELCADE [Suspect]
     Indication: MULTIPLE MYELOMA
     Dosage: 2.20 MG, INTRAVESICAL
     Route: 043
     Dates: start: 20070220, end: 20070223
  2. ALLOPURINOL [Concomitant]
  3. CALCICHEW-D3 (COLECALCIFEROL, CALCIUM CARBONATE) [Concomitant]
  4. DEXAMETHASONE TAB [Concomitant]
  5. DOMEPRIDONE (DOMPERIDONE) [Concomitant]
  6. METRONIDAZOLE [Concomitant]
  7. ONDANSETRON (ONDANSETRON0 [Concomitant]
  8. PHOSPHATE-SANDOZ (SODIUM BICARBONATE, SODIUM PHOSPHATE MONOBASIC (ANHY [Concomitant]
  9. POTASSIUM CHLORIDE [Concomitant]
  10. SODIUM BICARBONATE IN PLASTIC CONTAINER [Concomitant]
  11. LANSOPRAZOLE [Concomitant]

REACTIONS (1)
  - MYOCARDIAL INFARCTION [None]
